FAERS Safety Report 25975729 (Version 1)
Quarter: 2025Q4

REPORT INFORMATION
  Report Type: Spontaneous
  Country: EU (occurrence: EU)
  Receive Date: 20251029
  Receipt Date: 20251029
  Transmission Date: 20260117
  Serious: Yes (Hospitalization, Other)
  Sender: NOVO NORDISK
  Company Number: EU-NOVOPROD-1543635

PATIENT
  Age: 75 Year
  Sex: Female

DRUGS (1)
  1. WEGOVY [Suspect]
     Active Substance: SEMAGLUTIDE
     Indication: Overweight
     Dosage: UNK
     Dates: end: 20250502

REACTIONS (10)
  - Biliary obstruction [Unknown]
  - Sepsis [Unknown]
  - Portal vein thrombosis [Unknown]
  - Nasopharyngitis [Unknown]
  - Rash [Unknown]
  - Hordeolum [Unknown]
  - Oral herpes [Unknown]
  - Oral fungal infection [Unknown]
  - Skin burning sensation [Unknown]
  - Allodynia [Unknown]

NARRATIVE: CASE EVENT DATE: 20250201
